FAERS Safety Report 11347129 (Version 3)
Quarter: 2016Q1

REPORT INFORMATION
  Report Type: Spontaneous
  Country: US (occurrence: US)
  Receive Date: 20150806
  Receipt Date: 20160331
  Transmission Date: 20160525
  Serious: Yes (Hospitalization, Other)
  Sender: FDA-Public Use
  Company Number: US-BAYER-2015-394367

PATIENT
  Age: 30 Year
  Sex: Female

DRUGS (7)
  1. CYCLOBENZAPRINE HYDROCHLORIDE. [Concomitant]
     Active Substance: CYCLOBENZAPRINE HYDROCHLORIDE
  2. LORAZEPAM. [Concomitant]
     Active Substance: LORAZEPAM
     Dosage: 1 MG, UNK
     Route: 048
     Dates: start: 20150120
  3. METHOTREXATE [Concomitant]
     Active Substance: METHOTREXATE
     Indication: PARAPSORIASIS
     Dosage: 1 MG, UNK
     Route: 048
     Dates: start: 20150120
  4. MIRENA [Suspect]
     Active Substance: LEVONORGESTREL
     Indication: CONTRACEPTION
     Dosage: 20 MCG/24HR, CONT
     Route: 015
     Dates: start: 20120823, end: 20150306
  5. IBUPROFEN. [Concomitant]
     Active Substance: IBUPROFEN
  6. PROMETHAZINE [Concomitant]
     Active Substance: PROMETHAZINE\PROMETHAZINE HYDROCHLORIDE
     Route: 048
  7. MIRENA [Suspect]
     Active Substance: LEVONORGESTREL
     Indication: CONTRACEPTION
     Dosage: 20 MCG/24HR, CONT
     Route: 015
     Dates: start: 200910, end: 201107

REACTIONS (3)
  - Embedded device [None]
  - Device failure [None]
  - Device issue [None]

NARRATIVE: CASE EVENT DATE: 201501
